FAERS Safety Report 20779778 (Version 7)
Quarter: 2025Q1

REPORT INFORMATION
  Report Type: Spontaneous
  Country: US (occurrence: US)
  Receive Date: 20220503
  Receipt Date: 20250128
  Transmission Date: 20250409
  Serious: No
  Sender: PFIZER
  Company Number: US-PFIZER INC-2020451288

PATIENT
  Age: 49 Year
  Sex: Female

DRUGS (1)
  1. XELJANZ XR [Suspect]
     Active Substance: TOFACITINIB CITRATE
     Dosage: 11 MG, DAILY

REACTIONS (7)
  - Migraine [Recovered/Resolved]
  - Pain [Unknown]
  - Hot flush [Unknown]
  - Cough [Unknown]
  - Dyspnoea [Unknown]
  - Gait disturbance [Unknown]
  - Product prescribing error [Unknown]
